FAERS Safety Report 25484572 (Version 1)
Quarter: 2025Q2

REPORT INFORMATION
  Report Type: Spontaneous
  Country: US (occurrence: None)
  Receive Date: 20250626
  Receipt Date: 20250626
  Transmission Date: 20250717
  Serious: Yes (Hospitalization)
  Sender: FDA-CTU
  Company Number: None

PATIENT
  Age: 47 Year
  Sex: Female

DRUGS (12)
  1. INGREZZA [Suspect]
     Active Substance: VALBENAZINE DITOSYLATE
     Indication: Tardive dyskinesia
     Dosage: FREQUENCY : DAILY;?
     Route: 048
     Dates: start: 20220113
  2. BUDESONIDE\FORMOTEROL [Concomitant]
     Active Substance: BUDESONIDE\FORMOTEROL
     Dates: start: 20250131, end: 20250501
  3. CICLOPIROX [Concomitant]
     Active Substance: CICLOPIROX
     Dates: start: 20250610
  4. FLUOXETINE HYDROCHLORIDE [Concomitant]
     Active Substance: FLUOXETINE HYDROCHLORIDE
     Dates: start: 20250604
  5. GABAPENTIN [Concomitant]
     Active Substance: GABAPENTIN
     Dates: start: 20240420, end: 20250519
  6. Hydroxyzine 50mg [Concomitant]
     Dates: start: 20220623, end: 20250514
  7. MIDODRINE [Concomitant]
     Active Substance: MIDODRINE
     Dates: start: 20231209, end: 20250509
  8. NALTREXONE [Concomitant]
     Active Substance: NALTREXONE
     Dates: start: 20250219
  9. Potassium Chloride ER 20mEq [Concomitant]
     Dates: start: 20240305
  10. Prazosin 1mg [Concomitant]
     Dates: start: 20221115
  11. TRAZODONE [Concomitant]
     Active Substance: TRAZODONE HYDROCHLORIDE
     Dates: start: 20231108, end: 20250508
  12. XIFAXAN [Concomitant]
     Active Substance: RIFAXIMIN
     Dates: start: 20231201

REACTIONS (4)
  - Syncope [None]
  - Fall [None]
  - Shoulder fracture [None]
  - Blood pressure decreased [None]
